FAERS Safety Report 9061976 (Version 1)
Quarter: 2013Q1

REPORT INFORMATION
  Report Type: Spontaneous
  Country: US (occurrence: US)
  Receive Date: 20130129
  Receipt Date: 20130129
  Transmission Date: 20140127
  Serious: Yes (Hospitalization)
  Sender: FDA-Public Use
  Company Number: US-ELI_LILLY_AND_COMPANY-US201301006647

PATIENT
  Age: 61 Year
  Sex: Female

DRUGS (10)
  1. FORTEO [Suspect]
     Indication: HIP ARTHROPLASTY
     Dosage: 20 UG, QD
     Dates: start: 20121009, end: 20121224
  2. CYMBALTA [Concomitant]
  3. LYRICA [Concomitant]
  4. WELLBUTRIN [Concomitant]
  5. OXYCONTIN [Concomitant]
  6. OXYCODONE [Concomitant]
  7. METFORMIN [Concomitant]
  8. VITAMIN D [Concomitant]
     Dosage: 5000 DF, UNKNOWN
  9. VITAMIN C [Concomitant]
     Dosage: 1200 DF, UNKNOWN
  10. CALTRATE WITH VITAMIN D [Concomitant]

REACTIONS (4)
  - Cerebral haemorrhage [Recovering/Resolving]
  - Upper limb fracture [Recovering/Resolving]
  - Fall [Recovering/Resolving]
  - Drug prescribing error [Unknown]
